FAERS Safety Report 6573436-0 (Version None)
Quarter: 2010Q1

REPORT INFORMATION
  Report Type: 
  Country: None (occurrence: None)
  Receive Date: 20100204
  Receipt Date: 20100204
  Transmission Date: 20100710
  Serious: Yes (Other)
  Sender: FDA-Public Use
  Company Number: None

PATIENT
  Age: 30 Year
  Sex: Female
  Weight: 51.2565 kg

DRUGS (1)
  1. LATISSE [Suspect]
     Indication: MADAROSIS
     Dosage: 2 DROPS NIGHTLY TOP
     Route: 061
     Dates: start: 20090301, end: 20100106

REACTIONS (9)
  - ABNORMAL SENSATION IN EYE [None]
  - ASTHENOPIA [None]
  - EYE PAIN [None]
  - EYELID EXFOLIATION [None]
  - EYELID OEDEMA [None]
  - NIGHT BLINDNESS [None]
  - OCULAR DISCOMFORT [None]
  - SKIN DISCOLOURATION [None]
  - VISUAL ACUITY REDUCED [None]
